FAERS Safety Report 20331604 (Version 1)
Quarter: 2022Q1

REPORT INFORMATION
  Report Type: Spontaneous
  Country: US (occurrence: US)
  Receive Date: 20220113
  Receipt Date: 20220113
  Transmission Date: 20220423
  Serious: No
  Sender: FDA-Public Use
  Company Number: US-MYLANLABS-2021M1092362

PATIENT
  Sex: Male

DRUGS (6)
  1. KETOCONAZOLE [Suspect]
     Active Substance: KETOCONAZOLE
     Indication: Product used for unknown indication
     Dosage: UNK
  2. ZYTIGA [Concomitant]
     Active Substance: ABIRATERONE ACETATE
     Dosage: UNK
  3. XTANDI [Concomitant]
     Active Substance: ENZALUTAMIDE
     Dosage: UNK
  4. TAXOTERE [Concomitant]
     Active Substance: DOCETAXEL
     Dosage: 8 CYCLES OF TAXOTERE
  5. NILANDRON [Concomitant]
     Active Substance: NILUTAMIDE
     Dosage: UNK
  6. CABAZITAXEL [Concomitant]
     Active Substance: CABAZITAXEL
     Dosage: 27 CYCLES OF CABAZITAXEL

REACTIONS (1)
  - Prostatic specific antigen increased [Unknown]
